FAERS Safety Report 18442754 (Version 2)
Quarter: 2020Q4

REPORT INFORMATION
  Report Type: Spontaneous
  Country: US (occurrence: US)
  Receive Date: 20201029
  Receipt Date: 20201112
  Transmission Date: 20210114
  Serious: Yes (Other)
  Sender: FDA-Public Use
  Company Number: US-INTRA-CELLULAR THERAPIES, INC.-2020ICT00189

PATIENT
  Age: 44 Year
  Sex: Female
  Weight: 113.38 kg

DRUGS (7)
  1. CHROMIUM [Concomitant]
     Active Substance: CHROMIC CHLORIDE\CHROMIUM
  2. LEXAPRO [Concomitant]
     Active Substance: ESCITALOPRAM OXALATE
     Dosage: 30 UNK
  3. TRANXENE [Concomitant]
     Active Substance: CLORAZEPATE DIPOTASSIUM
     Dosage: 37.5 UNK
  4. CAPLYTA [Suspect]
     Active Substance: LUMATEPERONE
     Indication: HALLUCINATION, AUDITORY
     Dosage: 42 MG, 1X/DAY
     Route: 048
     Dates: start: 20200806, end: 20200921
  5. BENZTROPINE. [Concomitant]
     Active Substance: BENZTROPINE
     Dosage: 3 UNK
  6. UNSPECIFIED STOOL SOFTENER [Concomitant]
  7. CAPLYTA [Suspect]
     Active Substance: LUMATEPERONE
     Indication: SCHIZOPHRENIA
     Dosage: 42 MG, 1X/DAY
     Route: 048
     Dates: start: 20200731, end: 20200731

REACTIONS (10)
  - Psychotic disorder [Unknown]
  - Paranoia [Unknown]
  - Restlessness [Not Recovered/Not Resolved]
  - Dry mouth [Not Recovered/Not Resolved]
  - Drug ineffective [Recovered/Resolved]
  - Visual impairment [Recovered/Resolved]
  - Hallucination, auditory [Not Recovered/Not Resolved]
  - Headache [Not Recovered/Not Resolved]
  - Feeling abnormal [Not Recovered/Not Resolved]
  - Photophobia [Recovered/Resolved]

NARRATIVE: CASE EVENT DATE: 2020
